FAERS Safety Report 8569481 (Version 2)
Quarter: 2013Q2

REPORT INFORMATION
  Report Type: Spontaneous
  Country: US (occurrence: US)
  Receive Date: 20120518
  Receipt Date: 20130521
  Transmission Date: 20140414
  Serious: Yes (Other)
  Sender: FDA-Public Use
  Company Number: US-BRISTOL-MYERS SQUIBB COMPANY-16319626

PATIENT
  Age: 58 Year
  Sex: Male
  Weight: 61 kg

DRUGS (3)
  1. BARACLUDE [Suspect]
     Dates: start: 2006
  2. METFORMIN [Concomitant]
  3. GLUCOTROL [Concomitant]

REACTIONS (1)
  - Drug ineffective [Unknown]
